FAERS Safety Report 9629866 (Version 2)
Quarter: 2014Q2

REPORT INFORMATION
  Report Type: Spontaneous
  Country: AT (occurrence: AT)
  Receive Date: 20131017
  Receipt Date: 20140516
  Transmission Date: 20141212
  Serious: Yes (Life-Threatening, Hospitalization, Other)
  Sender: FDA-Public Use
  Company Number: AT-ASTRAZENECA-2013SE75769

PATIENT
  Age: 65 Year
  Sex: Female
  Weight: 71.5 kg

DRUGS (41)
  1. SEROQUEL [Suspect]
     Route: 048
     Dates: start: 20130625, end: 20130625
  2. SEROQUEL [Suspect]
     Route: 048
     Dates: start: 20130626, end: 20130626
  3. SEROQUEL [Suspect]
     Route: 048
     Dates: start: 20130627, end: 20130627
  4. SEROQUEL [Suspect]
     Route: 048
     Dates: start: 20130628, end: 20130628
  5. SEROQUEL [Suspect]
     Route: 048
     Dates: start: 20130629, end: 20130709
  6. SEROQUEL [Suspect]
     Route: 048
     Dates: start: 20130710, end: 20130718
  7. SEROQUEL [Suspect]
     Route: 048
     Dates: start: 20130719, end: 20130719
  8. SERTRALIN [Suspect]
     Dosage: 25, DAILY
     Route: 065
     Dates: start: 20130612
  9. SERTRALIN [Suspect]
     Dosage: 50, DAILY
     Route: 065
     Dates: start: 20130614
  10. SERTRALIN [Suspect]
     Dosage: 75, DAILY
     Route: 065
     Dates: start: 20130617
  11. SERTRALIN [Suspect]
     Dosage: 100, DAILY
     Route: 065
     Dates: start: 20130619
  12. SERTRALIN [Suspect]
     Dosage: 50, DAILY
     Route: 065
     Dates: start: 20130626
  13. SERTRALIN [Suspect]
     Dosage: 100, DAILY
     Route: 065
     Dates: start: 20130627
  14. SERTRALIN [Suspect]
     Dosage: 150, DAILY
     Route: 065
     Dates: start: 20130629
  15. SERTRALIN [Suspect]
     Dosage: 100, DAILY
     Route: 065
     Dates: start: 20130711
  16. SAROTEN [Concomitant]
     Dates: end: 20130606
  17. IXEL [Concomitant]
     Dates: end: 20130610
  18. IXEL [Concomitant]
     Dates: start: 20130611, end: 20130612
  19. MIRTABENE [Concomitant]
     Dosage: 15-30 MG, DAILY
     Dates: start: 20130607, end: 20130624
  20. LUMIGAN AT [Concomitant]
     Dosage: UNKNOWN, DAILY
  21. DOMINAL [Concomitant]
     Dosage: 40-80 MG WHEN NEEDED
     Dates: start: 20130607
  22. DOMINAL [Concomitant]
     Dates: start: 20130722
  23. ATARAX (HOVA) [Concomitant]
     Dosage: WHEN NEEDED
     Dates: start: 20130609
  24. ZOLDEM [Concomitant]
     Dosage: 10, DAILY
     Route: 048
     Dates: start: 20130614
  25. RIVOTRIL [Concomitant]
     Dosage: 0.5, DAILY
     Dates: start: 20130607, end: 20130610
  26. PARXITEN [Concomitant]
     Dosage: 30, DAILY
     Dates: start: 20130612, end: 20130613
  27. TEMESTA [Concomitant]
     Route: 048
     Dates: start: 20130702, end: 20130705
  28. TEMESTA [Concomitant]
     Route: 048
     Dates: start: 20130706, end: 20130710
  29. TEMESTA [Concomitant]
     Route: 048
     Dates: start: 20130711, end: 20130711
  30. TEMESTA [Concomitant]
     Route: 048
     Dates: start: 20130712, end: 20130714
  31. TEMESTA [Concomitant]
     Route: 048
     Dates: start: 20130715, end: 20130715
  32. TEMESTA [Concomitant]
     Route: 048
     Dates: start: 20130716, end: 20130719
  33. TEMESTA [Concomitant]
     Route: 048
     Dates: start: 20130720
  34. TEMESTA [Concomitant]
     Dosage: 1-2 MG, DAILY
     Route: 048
     Dates: start: 20130614, end: 20130701
  35. INDERAL [Concomitant]
     Dates: start: 20130708, end: 20130708
  36. INDERAL [Concomitant]
     Dates: start: 20130709, end: 20130710
  37. INDERAL [Concomitant]
     Dates: start: 20130711, end: 20130711
  38. CIRACDIN [Concomitant]
     Dates: start: 20130708
  39. EFECTIN ER [Concomitant]
     Dates: start: 20130712, end: 20130716
  40. EFECTIN ER [Concomitant]
     Dates: start: 20130717
  41. CALMABENE [Concomitant]
     Dates: start: 20130721

REACTIONS (1)
  - Pulmonary embolism [Recovered/Resolved]
